FAERS Safety Report 7436775-7 (Version None)
Quarter: 2011Q2

REPORT INFORMATION
  Report Type: 
  Country: None (occurrence: None)
  Receive Date: 20110426
  Receipt Date: 20110420
  Transmission Date: 20111010
  Serious: Yes (Death, Other)
  Sender: FDA-Public Use
  Company Number: IR-ASTELLAS-2011EU002256

PATIENT
  Age: 18 Month
  Sex: Male

DRUGS (3)
  1. MYCOPHENOLATE MOFETIL [Suspect]
     Indication: LIVER TRANSPLANT
     Dosage: 25 MG/KG, UNKNOWN/D
     Route: 065
  2. PREDNISOLONE [Suspect]
     Indication: LIVER TRANSPLANT
     Dosage: 10 MG, UNKNOWN/D
     Route: 065
  3. TACROLIMUS [Suspect]
     Indication: LIVER TRANSPLANT
     Dosage: 0.15 MG/KG, UNKNOWN/D
     Route: 065

REACTIONS (2)
  - HEPATIC STEATOSIS [None]
  - SEPSIS [None]
